FAERS Safety Report 9458539 (Version 1)
Quarter: 2013Q3

REPORT INFORMATION
  Report Type: Spontaneous
  Country: US (occurrence: None)
  Receive Date: 20130813
  Receipt Date: 20130813
  Transmission Date: 20140515
  Serious: No
  Sender: FDA-Public Use
  Company Number: None

PATIENT
  Age: 49 Year
  Sex: Male

DRUGS (3)
  1. TECFIDERA [Suspect]
     Indication: MULTIPLE SCLEROSIS
     Dosage: 1 CAPSULE BID ORAL ?MAY TO PRESENT
     Route: 048
  2. BACLOFEN [Concomitant]
  3. GABAPENTIN [Concomitant]

REACTIONS (4)
  - Flushing [None]
  - Rhinorrhoea [None]
  - Asthenia [None]
  - Balance disorder [None]
